FAERS Safety Report 19928271 (Version 1)
Quarter: 2021Q4

REPORT INFORMATION
  Report Type: Spontaneous
  Country: US (occurrence: US)
  Receive Date: 20211006
  Receipt Date: 20211006
  Transmission Date: 20220303
  Serious: Yes (Hospitalization)
  Sender: FDA-Public Use
  Company Number: None

PATIENT
  Age: 61 Year
  Sex: Female
  Weight: 81.9 kg

DRUGS (1)
  1. PIQRAY [Suspect]
     Active Substance: ALPELISIB
     Indication: Breast cancer
     Route: 048
     Dates: start: 20210917, end: 20210924

REACTIONS (3)
  - Rash [None]
  - Blood glucose increased [None]
  - Therapy interrupted [None]

NARRATIVE: CASE EVENT DATE: 20211004
